FAERS Safety Report 13334502 (Version 2)
Quarter: 2017Q3

REPORT INFORMATION
  Report Type: Spontaneous
  Country: US (occurrence: US)
  Receive Date: 20170314
  Receipt Date: 20170725
  Transmission Date: 20171127
  Serious: No
  Sender: FDA-Public Use
  Company Number: US-JNJFOC-20170219849

PATIENT
  Sex: Female

DRUGS (11)
  1. ATACAND [Concomitant]
     Active Substance: CANDESARTAN CILEXETIL
  2. SALMO SALAR OIL [Concomitant]
     Active Substance: ATLANTIC SALMON OIL
  3. SENNA ALEXANDRINA EXTRACT [Concomitant]
  4. SENNA [Concomitant]
     Active Substance: SENNA LEAF\SENNOSIDES\SENNOSIDES A AND B
  5. LEVOTHYROXINE. [Concomitant]
     Active Substance: LEVOTHYROXINE
  6. IMBRUVICA [Suspect]
     Active Substance: IBRUTINIB
     Indication: CHRONIC LYMPHOCYTIC LEUKAEMIA
     Route: 048
     Dates: start: 20141030
  7. IMBRUVICA [Suspect]
     Active Substance: IBRUTINIB
     Indication: CHRONIC LYMPHOCYTIC LEUKAEMIA
     Route: 048
     Dates: start: 2017
  8. IMBRUVICA [Suspect]
     Active Substance: IBRUTINIB
     Indication: CHRONIC LYMPHOCYTIC LEUKAEMIA
     Route: 048
     Dates: start: 20141030
  9. ACYCLOVIR. [Concomitant]
     Active Substance: ACYCLOVIR
  10. ASPIRIN. [Concomitant]
     Active Substance: ASPIRIN
  11. OCUVITE [Concomitant]
     Active Substance: VITAMINS

REACTIONS (2)
  - Product use issue [Not Recovered/Not Resolved]
  - Off label use [Not Recovered/Not Resolved]
